FAERS Safety Report 9633071 (Version 4)
Quarter: 2013Q4

REPORT INFORMATION
  Report Type: Report from Study
  Country: JP (occurrence: JP)
  Receive Date: 20131018
  Receipt Date: 20131108
  Transmission Date: 20140711
  Serious: Yes (Death)
  Sender: FDA-Public Use
  Company Number: JP-B.I. PHARMACEUTICALS,INC./RIDGEFIELD-2013-BI-32313NB

PATIENT
  Age: 66 Year
  Sex: Male
  Weight: 53.4 kg

DRUGS (10)
  1. TRAZENTA [Suspect]
     Indication: TYPE 2 DIABETES MELLITUS
     Dosage: 5 MG
     Route: 048
     Dates: start: 20130922, end: 20130927
  2. BAYASPIRIN [Concomitant]
     Dosage: 100 MG
     Route: 048
     Dates: end: 20130927
  3. PLAVIX [Concomitant]
     Dosage: 75 MG
     Route: 048
     Dates: end: 20130927
  4. LANSOPRAZOLE-OD [Concomitant]
     Indication: PROPHYLAXIS
     Dosage: 15 MG
     Route: 048
     Dates: end: 20130927
  5. LASIX [Concomitant]
     Dosage: 80 MG
     Route: 048
     Dates: end: 20130927
  6. VOGLIBOSE OD [Concomitant]
     Indication: TYPE 2 DIABETES MELLITUS
     Dosage: 0.9 MG
     Route: 048
     Dates: end: 20130927
  7. FLUITRAN [Concomitant]
     Dosage: 2 MG
     Route: 048
     Dates: end: 20130927
  8. ARTIST [Concomitant]
     Dosage: 5 MG
     Route: 048
     Dates: start: 20130922, end: 20130927
  9. HEPARIN SODIUM [Concomitant]
     Indication: PROPHYLAXIS
     Dosage: 20 ML
     Route: 042
     Dates: start: 20130925, end: 20130927
  10. XYLOCAINE [Concomitant]
     Indication: ANAESTHESIA PROCEDURE
     Dosage: 20 ML
     Route: 058
     Dates: start: 20130925, end: 20130925

REACTIONS (1)
  - Ventricular fibrillation [Fatal]
